FAERS Safety Report 8453589-X (Version None)
Quarter: 2012Q2

REPORT INFORMATION
  Report Type: 
  Country: None (occurrence: None)
  Receive Date: 20120620
  Receipt Date: 20120613
  Transmission Date: 20120825
  Serious: Yes (Hospitalization)
  Sender: FDA-Public Use
  Company Number: JP-MERCK-1206USA02796

PATIENT
  Age: 58 Year
  Sex: Male

DRUGS (3)
  1. METFORMIN HCL [Concomitant]
     Route: 065
  2. AMARYL [Concomitant]
     Route: 065
  3. JANUVIA [Suspect]
     Indication: TYPE 2 DIABETES MELLITUS
     Route: 048
     Dates: start: 20120118, end: 20120613

REACTIONS (1)
  - INTESTINAL OBSTRUCTION [None]
